APPROVED DRUG PRODUCT: SERTRALINE HYDROCHLORIDE
Active Ingredient: SERTRALINE HYDROCHLORIDE
Strength: EQ 50MG BASE
Dosage Form/Route: TABLET;ORAL
Application: A076882 | Product #002 | TE Code: AB
Applicant: PHARMACO LLC
Approved: Feb 6, 2007 | RLD: No | RS: No | Type: RX